FAERS Safety Report 24120158 (Version 1)
Quarter: 2024Q3

REPORT INFORMATION
  Report Type: Report from Study
  Country: JP (occurrence: JP)
  Receive Date: 20240722
  Receipt Date: 20240722
  Transmission Date: 20241017
  Serious: Yes (Hospitalization)
  Sender: ROCHE
  Company Number: JP-CHUGAI-2024024616AA

PATIENT
  Age: 74 Year

DRUGS (4)
  1. TECENTRIQ [Suspect]
     Active Substance: ATEZOLIZUMAB
     Indication: Hepatocellular carcinoma
     Dosage: 1200 (UNIT UNKNOWN)
     Route: 042
     Dates: start: 20230711
  2. TECENTRIQ [Suspect]
     Active Substance: ATEZOLIZUMAB
     Dosage: 600 (UNIT UNKNOWN)
     Route: 042
     Dates: start: 20231101
  3. AVASTIN [Suspect]
     Active Substance: BEVACIZUMAB
     Indication: Hepatocellular carcinoma
     Dosage: 855 (UNIT UNKNOWN)
     Route: 042
     Dates: start: 20230711
  4. AVASTIN [Suspect]
     Active Substance: BEVACIZUMAB
     Dosage: 780 (UNIT UNKNOWN)
     Route: 042
     Dates: start: 20231010

REACTIONS (5)
  - Pyrexia [Recovered/Resolved]
  - Decreased appetite [Recovered/Resolved]
  - Respiratory failure [Recovered/Resolved]
  - Infusion related reaction [Recovered/Resolved]
  - Anaphylactic shock [Recovered/Resolved]

NARRATIVE: CASE EVENT DATE: 20230721
